FAERS Safety Report 5337848-5 (Version None)
Quarter: 2007Q2

REPORT INFORMATION
  Report Type: 
  Country: None (occurrence: None)
  Receive Date: 20070308
  Receipt Date: 20061202
  Transmission Date: 20071010
  Serious: No
  Sender: FDA-Public Use
  Company Number: IND-AE-06-SAN-051

PATIENT
  Sex: Male

DRUGS (2)
  1. SANCTURA [Suspect]
     Indication: HYPERTONIC BLADDER
     Dosage: 20MG- BID -ORAL
     Route: 048
  2. LIPITOR [Concomitant]

REACTIONS (9)
  - CONSTIPATION [None]
  - DRY EYE [None]
  - DRY MOUTH [None]
  - DYSURIA [None]
  - EYE PAIN [None]
  - FLUID RETENTION [None]
  - HEADACHE [None]
  - POLLAKIURIA [None]
  - VISION BLURRED [None]
